FAERS Safety Report 13290609 (Version 2)
Quarter: 2017Q1

REPORT INFORMATION
  Report Type: Spontaneous
  Country: CZ (occurrence: CZ)
  Receive Date: 20170303
  Receipt Date: 20170317
  Transmission Date: 20170428
  Serious: Yes (Hospitalization, Other)
  Sender: FDA-Public Use
  Company Number: CZ-APOTEX-2017AP007499

PATIENT
  Age: 60 Year
  Sex: Male

DRUGS (3)
  1. APO-METFORMIN 1000 MG [Suspect]
     Active Substance: METFORMIN HYDROCHLORIDE
     Indication: TYPE 2 DIABETES MELLITUS
     Dosage: UNK
     Route: 065
  2. CEFUROXIME. [Suspect]
     Active Substance: CEFUROXIME
     Indication: ANTIBIOTIC PROPHYLAXIS
     Dosage: UNK
     Route: 065
  3. INSULIN [Concomitant]
     Active Substance: INSULIN NOS
     Indication: TYPE 2 DIABETES MELLITUS
     Route: 065

REACTIONS (7)
  - Metabolic acidosis [Recovered/Resolved]
  - Tubulointerstitial nephritis [Recovered/Resolved]
  - Acute kidney injury [Recovered/Resolved]
  - Shock [Recovered/Resolved]
  - Nephritis allergic [Recovered/Resolved]
  - Systemic infection [Recovered/Resolved]
  - Hyperlactacidaemia [Recovered/Resolved]
